FAERS Safety Report 21839477 (Version 2)
Quarter: 2023Q1

REPORT INFORMATION
  Report Type: Spontaneous
  Country: US (occurrence: US)
  Receive Date: 20230109
  Receipt Date: 20230126
  Transmission Date: 20230418
  Serious: Yes (Other)
  Sender: FDA-Public Use
  Company Number: US-PRINSTON PHARMACEUTICAL INC.-2022PRN00419

PATIENT
  Sex: Male
  Weight: 83.9 kg

DRUGS (11)
  1. LISINOPRIL [Suspect]
     Active Substance: LISINOPRIL
     Indication: Hypertension
     Dosage: 2.5 MG, 1X/DAY
     Route: 048
     Dates: start: 2000
  2. LISINOPRIL [Suspect]
     Active Substance: LISINOPRIL
     Dosage: 5 MG
     Dates: start: 2001
  3. LISINOPRIL [Suspect]
     Active Substance: LISINOPRIL
     Indication: Hypertension
     Dosage: 2.5 MG, 1X/DAY
     Route: 048
     Dates: start: 2002
  4. LISINOPRIL [Suspect]
     Active Substance: LISINOPRIL
     Dosage: 1.25 MG, 1X/DAY
     Route: 048
     Dates: end: 202211
  5. LISINOPRIL [Suspect]
     Active Substance: LISINOPRIL
     Dosage: 1.25 MG, 1X/DAY (2.5 MG CUT IN HALF)
     Route: 048
     Dates: start: 202211, end: 2022
  6. LISINOPRIL [Suspect]
     Active Substance: LISINOPRIL
     Dosage: 2.5 MG, 1X/DAY
     Dates: start: 2022
  7. LISINOPRIL [Suspect]
     Active Substance: LISINOPRIL
     Dosage: 10 MG, ONCE
     Dates: start: 2001, end: 2001
  8. PAXLOVID [Suspect]
     Active Substance: NIRMATRELVIR\RITONAVIR
     Indication: COVID-19
     Dosage: 3 TABLETS, 2X/DAY (300 MG-100MG)
     Dates: start: 20221103, end: 202211
  9. VITAMINS [Concomitant]
     Active Substance: VITAMINS
     Dosage: 1X/DAY
     Dates: start: 2000
  10. VITAMIN D NOS [Concomitant]
     Active Substance: VITAMIN D NOS
     Dosage: 1X/DAY
     Dates: start: 2010
  11. VITAMIN C [Concomitant]
     Active Substance: ASCORBIC ACID
     Dosage: 1X/DAY
     Dates: start: 2005

REACTIONS (15)
  - Blood pressure increased [Recovered/Resolved]
  - Brain stem syndrome [Unknown]
  - Cardiac operation [Unknown]
  - Oropharyngeal pain [Recovered/Resolved]
  - Influenza [Recovering/Resolving]
  - Intentional product use issue [Not Recovered/Not Resolved]
  - Intentional dose omission [Recovered/Resolved]
  - Peripheral coldness [Not Recovered/Not Resolved]
  - Insomnia [Not Recovered/Not Resolved]
  - Discomfort [Unknown]
  - Abnormal dreams [Unknown]
  - Hypotension [Not Recovered/Not Resolved]
  - Asthenia [Recovering/Resolving]
  - Unevaluable event [Unknown]
  - Incorrect dose administered [Recovered/Resolved]

NARRATIVE: CASE EVENT DATE: 20010101
